FAERS Safety Report 18117457 (Version 1)
Quarter: 2020Q3

REPORT INFORMATION
  Report Type: Spontaneous
  Country: ES (occurrence: ES)
  Receive Date: 20200806
  Receipt Date: 20200806
  Transmission Date: 20201103
  Serious: Yes (Life-Threatening)
  Sender: FDA-Public Use
  Company Number: ES-TEVA-2020-ES-1809385

PATIENT
  Age: 48 Year
  Sex: Female

DRUGS (6)
  1. DARBEPOETINA ALFA (7430A) [Concomitant]
     Indication: CHRONIC KIDNEY DISEASE
     Route: 058
     Dates: start: 20200522
  2. PIPERACILINA + TAZOBACTAM [Suspect]
     Active Substance: PIPERACILLIN SODIUM\TAZOBACTAM SODIUM
     Dosage: 1 DOSAGE FORM
     Route: 042
     Dates: start: 20200528, end: 20200617
  3. FLUCONAZOL (2432A) [Concomitant]
     Active Substance: FLUCONAZOLE
     Route: 042
     Dates: start: 20200603, end: 20200610
  4. LINEZOLID (1279A) [Suspect]
     Active Substance: LINEZOLID
     Dosage: 600MG
     Route: 042
     Dates: start: 20200528, end: 20200617
  5. GANCICLOVIR (2370A) [Concomitant]
     Active Substance: GANCICLOVIR
     Indication: CYTOMEGALOVIRUS INFECTION
     Dosage: 50MG
     Route: 042
     Dates: start: 20200522
  6. MEROPENEM (7155A) [Concomitant]
     Active Substance: MEROPENEM
     Route: 042
     Dates: start: 20200522, end: 20200528

REACTIONS (3)
  - Aplasia pure red cell [Recovered/Resolved]
  - Thrombocytopenia [Recovered/Resolved]
  - Lymphopenia [Recovered/Resolved]

NARRATIVE: CASE EVENT DATE: 20200606
